FAERS Safety Report 9193781 (Version 1)
Quarter: 2013Q1

REPORT INFORMATION
  Report Type: Spontaneous
  Country: US (occurrence: US)
  Receive Date: 20130327
  Receipt Date: 20130327
  Transmission Date: 20140127
  Serious: Yes (Other)
  Sender: FDA-Public Use
  Company Number: US-TEVA-393082USA

PATIENT
  Sex: Female
  Weight: 154.36 kg

DRUGS (2)
  1. METFORMIN [Suspect]
     Indication: DIABETES MELLITUS
     Dosage: 500 MILLIGRAM DAILY;
     Dates: start: 2011, end: 2012
  2. CATAPRES [Concomitant]
     Indication: HYPERTENSION
     Dosage: .1 MILLIGRAM DAILY;

REACTIONS (8)
  - Nerve injury [Recovering/Resolving]
  - Hypersensitivity [Recovering/Resolving]
  - Local swelling [Recovering/Resolving]
  - Erythema [Recovering/Resolving]
  - Swelling face [Recovering/Resolving]
  - Wheezing [Recovering/Resolving]
  - Reaction to drug excipients [Recovering/Resolving]
  - Movement disorder [Recovering/Resolving]
